FAERS Safety Report 4990769-X (Version None)
Quarter: 2006Q2

REPORT INFORMATION
  Report Type: 
  Country: None (occurrence: None)
  Receive Date: 20060428
  Receipt Date: 20060418
  Transmission Date: 20061013
  Serious: Yes (Death, Hospitalization)
  Sender: FDA-Public Use
  Company Number: 028-C5013-06010086

PATIENT
  Age: 57 Year
  Sex: Male

DRUGS (8)
  1. REVLIMID [Suspect]
     Indication: MULTIPLE MYELOMA
     Dosage: 25 MG, OD; ORAL
     Route: 048
     Dates: start: 20051222, end: 20051227
  2. DEXAMETHASONE [Suspect]
     Indication: MULTIPLE MYELOMA
     Dosage: 40 MG, DAYS 1-4, 9-12, 17-20 OF OF 28 DAY CYCLE, ORAL
     Route: 048
     Dates: start: 20051222, end: 20051227
  3. RANITIDINE [Concomitant]
  4. DIAZEPAM (DIAZEPAM) (TABLETS) [Concomitant]
  5. DEXAMETHASONE [Concomitant]
  6. DURAGESIC-100 [Concomitant]
  7. ZOLOFT [Concomitant]
  8. PAMIDRONATE DISODIUM [Concomitant]

REACTIONS (20)
  - BLOOD IMMUNOGLOBULIN G DECREASED [None]
  - DEHYDRATION [None]
  - DIZZINESS [None]
  - DRUG RESISTANCE [None]
  - FEBRILE NEUTROPENIA [None]
  - HAEMOGLOBIN INCREASED [None]
  - HYPERCALCAEMIA [None]
  - INTERVERTEBRAL DISC PROTRUSION [None]
  - LOSS OF CONSCIOUSNESS [None]
  - LUNG NEOPLASM [None]
  - NERVE ROOT COMPRESSION [None]
  - PLASMACYTOMA [None]
  - PLATELET COUNT DECREASED [None]
  - PLEURAL EFFUSION [None]
  - PNEUMONIA [None]
  - RADIATION PNEUMONITIS [None]
  - RED BLOOD CELL COUNT DECREASED [None]
  - RESPIRATORY FAILURE [None]
  - SCIATICA [None]
  - VISION BLURRED [None]
